FAERS Safety Report 15394161 (Version 1)
Quarter: 2018Q3

REPORT INFORMATION
  Report Type: Spontaneous
  Country: US (occurrence: US)
  Receive Date: 20180918
  Receipt Date: 20180918
  Transmission Date: 20181010
  Serious: Yes (Other)
  Sender: FDA-Public Use
  Company Number: US-LUPIN PHARMACEUTICALS INC.-2018-06364

PATIENT
  Age: 31 Year
  Sex: Female

DRUGS (20)
  1. GLATIRAMER ACETATE. [Concomitant]
     Active Substance: GLATIRAMER ACETATE
     Indication: PRODUCT USED FOR UNKNOWN INDICATION
     Dosage: 40 MG, 3 TIMES PER WEEK
     Route: 058
  2. DULOXETINE. [Interacting]
     Active Substance: DULOXETINE
     Indication: NEURALGIA
     Dosage: 20 MG, EVERY MORNING FOR 1 WEEK
     Route: 065
  3. DULOXETINE. [Interacting]
     Active Substance: DULOXETINE
     Dosage: 40 MG, DAILY FOR 1 WEEK
  4. AMITRIPTYLINE [Interacting]
     Active Substance: AMITRIPTYLINE
     Indication: NEURALGIA
     Dosage: 10 MG, EVERY EVENING
     Route: 065
  5. NITROGLYCERIN. [Concomitant]
     Active Substance: NITROGLYCERIN
     Indication: BLOOD PRESSURE INCREASED
     Dosage: 2 % (1 INCH TO CHEST FOR SBP GREATER THAN 160/90, WIPE OFF AT 120/80)
     Route: 065
  6. GABAPENTIN. [Suspect]
     Active Substance: GABAPENTIN
     Indication: NEURALGIA
     Dosage: 300 MG, TID
     Route: 065
  7. GABAPENTIN. [Suspect]
     Active Substance: GABAPENTIN
     Dosage: DECREASED DSOE BY 300MG TID EACH WEEK
     Route: 065
  8. DOCUSATE [Concomitant]
     Active Substance: DOCUSATE
     Indication: FUNCTIONAL GASTROINTESTINAL DISORDER
     Dosage: 1 DF, QD (MINI ENEMA)
     Route: 054
  9. GABAPENTIN. [Suspect]
     Active Substance: GABAPENTIN
     Dosage: 600 MG, TID
  10. ACETAMINOPHEN. [Concomitant]
     Active Substance: ACETAMINOPHEN
     Indication: PAIN
     Dosage: 1 G, TID (AS NEEDED)
     Route: 048
  11. GABAPENTIN. [Suspect]
     Active Substance: GABAPENTIN
     Dosage: 1200 MG, TID
     Route: 065
  12. AMITRIPTYLINE [Interacting]
     Active Substance: AMITRIPTYLINE
     Dosage: 20 MG, EVERY EVENING (INCREASED DOSE)
     Route: 065
  13. GABAPENTIN. [Suspect]
     Active Substance: GABAPENTIN
     Dosage: 900 MG, TID
     Route: 065
  14. DULOXETINE. [Interacting]
     Active Substance: DULOXETINE
     Dosage: 30 MG, QD (FOR THREE DAYS)
     Route: 048
  15. DIAZEPAM. [Concomitant]
     Active Substance: DIAZEPAM
     Indication: PRODUCT USED FOR UNKNOWN INDICATION
     Dosage: 5 MG, TID
     Route: 048
  16. DULOXETINE. [Interacting]
     Active Substance: DULOXETINE
     Dosage: 60 MG, QD
     Route: 048
  17. AMITRIPTYLINE [Interacting]
     Active Substance: AMITRIPTYLINE
     Dosage: 30 MG,  EVERY EVENING
     Route: 065
  18. AMITRIPTYLINE [Interacting]
     Active Substance: AMITRIPTYLINE
     Dosage: 50 MG, EVERY EVENING
     Route: 065
  19. NYSTATIN. [Concomitant]
     Active Substance: NYSTATIN
     Indication: RASH
     Dosage: 100,000U/GRAM, TID
     Route: 061
  20. TIZANIDINE HYDROCHLORIDE. [Concomitant]
     Active Substance: TIZANIDINE HYDROCHLORIDE
     Indication: PRODUCT USED FOR UNKNOWN INDICATION
     Dosage: 8 MG, TID
     Route: 048

REACTIONS (4)
  - Drug interaction [Unknown]
  - Fatigue [Unknown]
  - Therapeutic response decreased [Unknown]
  - Autonomic dysreflexia [Recovered/Resolved]
